FAERS Safety Report 24899940 (Version 4)
Quarter: 2025Q2

REPORT INFORMATION
  Report Type: Report from Study
  Country: US (occurrence: US)
  Receive Date: 20250129
  Receipt Date: 20250402
  Transmission Date: 20250716
  Serious: Yes (Disabling)
  Sender: JAZZ
  Company Number: US-JAZZ PHARMACEUTICALS-2024-US-010276

PATIENT
  Age: 36 Year
  Sex: Male

DRUGS (11)
  1. XYWAV [Suspect]
     Active Substance: CALCIUM OXYBATE\MAGNESIUM OXYBATE\POTASSIUM OXYBATE\SODIUM OXYBATE
     Indication: Narcolepsy
     Dosage: 2.5 GRAM, BID
     Route: 048
     Dates: start: 20240629
  2. XYWAV [Suspect]
     Active Substance: CALCIUM OXYBATE\MAGNESIUM OXYBATE\POTASSIUM OXYBATE\SODIUM OXYBATE
     Indication: Cataplexy
     Dosage: 4.5 GRAM, BID
     Route: 048
  3. XYWAV [Suspect]
     Active Substance: CALCIUM OXYBATE\MAGNESIUM OXYBATE\POTASSIUM OXYBATE\SODIUM OXYBATE
     Indication: Somnolence
     Dosage: 4.5 GRAM, BID
     Route: 048
  4. MELOXICAM [Concomitant]
     Active Substance: MELOXICAM
     Indication: Product used for unknown indication
     Dates: start: 20240726
  5. OMEPRAZOLE [Concomitant]
     Active Substance: OMEPRAZOLE
     Indication: Product used for unknown indication
     Dates: start: 20240726
  6. IBUPROFEN [Concomitant]
     Active Substance: IBUPROFEN
     Dates: start: 20241009
  7. CETIRIZINE HYDROCHLORIDE [Concomitant]
     Active Substance: CETIRIZINE HYDROCHLORIDE
     Indication: Seasonal allergy
  8. VENLAFAXINE HCL [Concomitant]
     Active Substance: VENLAFAXINE HYDROCHLORIDE
     Indication: Anxiety
     Dates: start: 20241210
  9. LORAZEPAM [Concomitant]
     Active Substance: LORAZEPAM
     Dates: start: 20241206, end: 20250121
  10. CLONAZEPAM [Concomitant]
     Active Substance: CLONAZEPAM
  11. PREDNISONE [Concomitant]
     Active Substance: PREDNISONE
     Dates: start: 20241110

REACTIONS (18)
  - Conversion disorder [Not Recovered/Not Resolved]
  - Abnormal behaviour [Recovered/Resolved]
  - Hyperhidrosis [Recovered/Resolved]
  - Enuresis [Recovered/Resolved]
  - Somnambulism [Recovered/Resolved]
  - Gait disturbance [Unknown]
  - Joint swelling [Unknown]
  - Arthropathy [Unknown]
  - Hoffmann^s sign [Unknown]
  - Myoclonus [Unknown]
  - Chest discomfort [Unknown]
  - Snoring [Unknown]
  - Extrapyramidal disorder [Unknown]
  - Post-traumatic stress disorder [Unknown]
  - Tremor [Unknown]
  - Wrong technique in product usage process [Unknown]
  - Product administration interrupted [Unknown]
  - Product dose omission issue [Unknown]

NARRATIVE: CASE EVENT DATE: 20241004
